FAERS Safety Report 9956106 (Version 1)
Quarter: 2014Q1

REPORT INFORMATION
  Report Type: Report from Study
  Country: US (occurrence: US)
  Receive Date: 20140304
  Receipt Date: 20140304
  Transmission Date: 20141002
  Serious: No
  Sender: FDA-Public Use
  Company Number: US-ABBVIE-13P-163-1086798-00

PATIENT
  Age: 46 Year
  Sex: Male

DRUGS (6)
  1. HUMIRA [Suspect]
     Indication: CROHN^S DISEASE
     Dates: start: 20130215
  2. HUMIRA [Suspect]
     Dates: start: 20130515
  3. LOMOTIL [Concomitant]
     Indication: DIARRHOEA
  4. BENTYL [Concomitant]
     Indication: ABDOMINAL PAIN UPPER
  5. BENTYL [Concomitant]
     Indication: DIARRHOEA
  6. OXYCONTIN [Concomitant]
     Indication: ABDOMINAL PAIN UPPER

REACTIONS (4)
  - Faeces discoloured [Recovered/Resolved]
  - Pain [Recovered/Resolved]
  - Fatigue [Recovered/Resolved]
  - Influenza like illness [Recovering/Resolving]
